FAERS Safety Report 8251756-1 (Version None)
Quarter: 2012Q2

REPORT INFORMATION
  Report Type: 
  Country: None (occurrence: None)
  Receive Date: 20120402
  Receipt Date: 20120322
  Transmission Date: 20120825
  Serious: Yes (Other)
  Sender: FDA-Public Use
  Company Number: CA-JNJFOC-20120311542

PATIENT
  Sex: Female
  Weight: 46.3 kg

DRUGS (7)
  1. PANTOPRAZOLE [Concomitant]
  2. REMICADE [Suspect]
     Indication: RHEUMATOID ARTHRITIS
     Route: 042
     Dates: start: 20090323
  3. SYNTHROID [Concomitant]
  4. METHOTREXATE [Concomitant]
  5. FOLIC ACID [Concomitant]
  6. DICLOFENAC SODIUM [Concomitant]
  7. FERROUS SULFATE TAB [Concomitant]

REACTIONS (1)
  - CORNEAL DEFECT [None]
